FAERS Safety Report 13020398 (Version 2)
Quarter: 2017Q1

REPORT INFORMATION
  Report Type: Spontaneous
  Country: US (occurrence: US)
  Receive Date: 20161212
  Receipt Date: 20170120
  Transmission Date: 20170428
  Serious: Yes (Hospitalization, Other)
  Sender: FDA-Public Use
  Company Number: US-PFIZER INC-2016453959

PATIENT
  Age: 66 Year
  Sex: Male

DRUGS (1)
  1. XALKORI [Suspect]
     Active Substance: CRIZOTINIB
     Indication: OESOPHAGEAL CANCER METASTATIC
     Dosage: 250 MG, 2X/DAY (30 DAYS SUPPLY)
     Route: 048
     Dates: start: 201610

REACTIONS (4)
  - Product use issue [Unknown]
  - Fall [Recovered/Resolved with Sequelae]
  - Hip fracture [Recovering/Resolving]
  - Femur fracture [Unknown]

NARRATIVE: CASE EVENT DATE: 201611
